FAERS Safety Report 13835007 (Version 3)
Quarter: 2018Q1

REPORT INFORMATION
  Report Type: Spontaneous
  Country: US (occurrence: US)
  Receive Date: 20170804
  Receipt Date: 20180131
  Transmission Date: 20180508
  Serious: Yes (Other)
  Sender: FDA-Public Use
  Company Number: US-PFIZER INC-2017334907

PATIENT
  Age: 69 Year
  Sex: Female

DRUGS (1)
  1. XELJANZ [Suspect]
     Active Substance: TOFACITINIB CITRATE
     Dosage: 5 MG, 2X/DAY
     Dates: start: 201404

REACTIONS (6)
  - Insomnia [Unknown]
  - Rib fracture [Unknown]
  - Weight increased [Unknown]
  - Musculoskeletal pain [Unknown]
  - Fall [Unknown]
  - Balance disorder [Unknown]
